FAERS Safety Report 6981189-7 (Version None)
Quarter: 2010Q3

REPORT INFORMATION
  Report Type: 
  Country: None (occurrence: None)
  Receive Date: 20100914
  Receipt Date: 20100816
  Transmission Date: 20110219
  Serious: No
  Sender: FDA-Public Use
  Company Number: US-PFIZER INC-2010103610

PATIENT
  Sex: Male
  Weight: 99.8 kg

DRUGS (1)
  1. LYRICA [Suspect]
     Indication: CARPAL TUNNEL SYNDROME
     Dosage: 75 MG, DAILY
     Route: 048
     Dates: start: 20100101

REACTIONS (2)
  - DIZZINESS [None]
  - MIGRAINE [None]
